FAERS Safety Report 4426512-2 (Version None)
Quarter: 2004Q3

REPORT INFORMATION
  Report Type: 
  Country: None (occurrence: None)
  Receive Date: 20040812
  Receipt Date: 20040812
  Transmission Date: 20050211
  Serious: Yes (Hospitalization)
  Sender: FDA-Public Use
  Company Number: None

PATIENT
  Age: 75 Year
  Sex: Female
  Weight: 66.4 kg

DRUGS (8)
  1. PHENYTOIN [Suspect]
     Indication: CONVULSION
     Dosage: 330MG  DAILY   ORAL
     Route: 048
  2. FINASTERIDE [Concomitant]
  3. FOSINOPRIL SODIUM [Concomitant]
  4. HYDROCHLOROTHIAZIDE [Concomitant]
  5. KCL TAB [Concomitant]
  6. RISPERIDONE [Concomitant]
  7. TERAZOSIN HCL [Concomitant]
  8. TOPIRMATE [Concomitant]

REACTIONS (6)
  - ASTHENIA [None]
  - DECREASED APPETITE [None]
  - DRUG LEVEL INCREASED [None]
  - DYSARTHRIA [None]
  - LETHARGY [None]
  - NYSTAGMUS [None]
